FAERS Safety Report 8199407-9 (Version None)
Quarter: 2012Q1

REPORT INFORMATION
  Report Type: 
  Country: None (occurrence: None)
  Receive Date: 20120309
  Receipt Date: 20120305
  Transmission Date: 20120608
  Serious: Yes (Death, Hospitalization, Other)
  Sender: FDA-Public Use
  Company Number: CA-AMGEN-CANSP2012004337

PATIENT
  Age: 67 Year
  Sex: Female

DRUGS (5)
  1. ENBREL [Suspect]
     Indication: RHEUMATOID ARTHRITIS
     Dosage: 50 MG, QWK
     Route: 058
     Dates: start: 20070101, end: 20110101
  2. ENBREL [Suspect]
     Dosage: 25 MG, 2 TIMES/WK
     Dates: start: 20021114, end: 20120120
  3. SULFASALAZINE [Concomitant]
     Dosage: 500 MG, BID
  4. FOSAMAX [Concomitant]
     Dosage: 70 MG, UNK
  5. PLAVIX [Concomitant]
     Dosage: 75 MG, UNK

REACTIONS (2)
  - LUNG ADENOCARCINOMA [None]
  - METASTASES TO BONE [None]
